FAERS Safety Report 16405521 (Version 1)
Quarter: 2019Q2

REPORT INFORMATION
  Report Type: Spontaneous
  Country: FR (occurrence: FR)
  Receive Date: 20190607
  Receipt Date: 20190607
  Transmission Date: 20190711
  Serious: Yes (Death)
  Sender: FDA-Public Use
  Company Number: FR-TEVA-2019-FR-1058858

PATIENT
  Age: 77 Year
  Sex: Female
  Weight: 60 kg

DRUGS (5)
  1. METFORMINE [Suspect]
     Active Substance: METFORMIN HYDROCHLORIDE
     Dosage: 1000 MILLIGRAM DAILY;
     Route: 048
     Dates: start: 20190405
  2. SOTALOL (CHLORHYDRATE DE) [Suspect]
     Active Substance: SOTALOL
     Dosage: 80 MILLIGRAM DAILY;
     Route: 048
     Dates: start: 20190411, end: 20190411
  3. AMIODARONE [Suspect]
     Active Substance: AMIODARONE
     Dosage: 2 DOSAGE FORMS DAILY;
     Route: 048
     Dates: start: 20190405, end: 20190411
  4. BISOPROLOL (FUMARATE ACIDE DE) [Suspect]
     Active Substance: BISOPROLOL FUMARATE
     Dosage: 1.25 MILLIGRAM DAILY;
     Route: 048
     Dates: start: 20190405, end: 20190411
  5. PRAVASTATINE SODIQUE [Suspect]
     Active Substance: PRAVASTATIN SODIUM
     Dosage: 40 MILLIGRAM DAILY;
     Route: 048
     Dates: start: 20190405

REACTIONS (1)
  - Cardio-respiratory arrest [Fatal]
